FAERS Safety Report 16423978 (Version 3)
Quarter: 2019Q3

REPORT INFORMATION
  Report Type: Spontaneous
  Country: IT (occurrence: IT)
  Receive Date: 20190613
  Receipt Date: 20190912
  Transmission Date: 20191004
  Serious: Yes (Hospitalization, Other)
  Sender: FDA-Public Use
  Company Number: IT-AUROBINDO-AUR-APL-2019-033337

PATIENT
  Age: 64 Year
  Sex: Female

DRUGS (15)
  1. OMEPRAZEN [Suspect]
     Active Substance: OMEPRAZOLE
     Indication: GASTRITIS PROPHYLAXIS
     Dosage: 20 MILLIGRAM, ONCE A DAY
     Route: 065
     Dates: start: 201501
  2. CC-122 [Suspect]
     Active Substance: AVADOMIDE
     Dosage: 3 MILLIGRAM,CYCLE 19 MONDAY-FRIDAY
     Route: 048
     Dates: start: 20190221, end: 20190320
  3. SELEPARINA [Concomitant]
     Active Substance: NADROPARIN CALCIUM
     Indication: THROMBOSIS PROPHYLAXIS
     Dosage: 1 UNK, ONCE A DAY, 0.6
     Route: 065
     Dates: start: 20171005
  4. RITUXIMAB. [Suspect]
     Active Substance: RITUXIMAB
     Indication: B-CELL LYMPHOMA
     Dosage: 375 MILLIGRAM, CYCLE 1
     Route: 042
     Dates: start: 20171012, end: 20171012
  5. TAVOR [Concomitant]
     Indication: INSOMNIA
     Dosage: 9 MILLIGRAM, ONCE A DAY
     Route: 065
  6. ACICLOVIR [Concomitant]
     Active Substance: ACYCLOVIR
     Indication: CYTOMEGALOVIRUS CHORIORETINITIS
     Dosage: 750 MILLIGRAM, ONCE A DAY
     Route: 048
  7. SELEPARINA [Concomitant]
     Active Substance: NADROPARIN CALCIUM
     Dosage: 5700 INTERNATIONAL UNIT, ONCE A DAY
     Route: 058
     Dates: start: 20171005
  8. FILGRASTIM [Concomitant]
     Active Substance: FILGRASTIM
     Indication: PROPHYLAXIS
     Dosage: 2 UNK, EVERY WEEK, 30 MU
     Route: 065
     Dates: start: 201804
  9. ENTECAVIR. [Suspect]
     Active Substance: ENTECAVIR
     Indication: HEPATITIS B VIRUS TEST POSITIVE
     Dosage: 0.5 MILLIGRAM, ONCE A DAY
     Route: 065
     Dates: start: 201303
  10. OMEPRAZOLE. [Concomitant]
     Active Substance: OMEPRAZOLE
     Indication: GASTROOESOPHAGEAL REFLUX DISEASE
     Dosage: 20 MILLIGRAM
     Route: 048
  11. BACTRIM [Concomitant]
     Active Substance: SULFAMETHOXAZOLE\TRIMETHOPRIM
     Indication: ANTIFUNGAL PROPHYLAXIS
     Dosage: 960 MILLIGRAM
     Route: 048
     Dates: start: 20171005
  12. CC-122 [Suspect]
     Active Substance: AVADOMIDE
     Indication: B-CELL LYMPHOMA
     Dosage: 3 MILLIGRAM,CYCLE 1 MONDAY-FRIDAY
     Route: 048
     Dates: start: 20171005, end: 20171102
  13. DIBASE [Concomitant]
     Active Substance: CHOLECALCIFEROL
     Indication: OSTEOPENIA
     Dosage: 35 GTT DROPS
     Route: 048
     Dates: start: 2015
  14. LORAZEPAM. [Concomitant]
     Active Substance: LORAZEPAM
     Indication: INSOMNIA
     Dosage: 1 MILLIGRAM, ONCE A DAY
     Route: 048
     Dates: start: 20190124
  15. MOVICOL [Concomitant]
     Active Substance: POLYETHYLENE GLYCOL 3350\POTASSIUM CHLORIDE\SODIUM BICARBONATE\SODIUM CHLORIDE
     Indication: CONSTIPATION
     Dosage: 1 UNK,AS NECESSARY
     Route: 048
     Dates: start: 20180906

REACTIONS (2)
  - Viral uveitis [Recovered/Resolved]
  - Herpes ophthalmic [Not Recovered/Not Resolved]

NARRATIVE: CASE EVENT DATE: 20190318
